FAERS Safety Report 20742340 (Version 1)
Quarter: 2022Q2

REPORT INFORMATION
  Report Type: Spontaneous
  Country: FR (occurrence: FR)
  Receive Date: 20220424
  Receipt Date: 20220424
  Transmission Date: 20220721
  Serious: Yes (Hospitalization)
  Sender: FDA-Public Use
  Company Number: None

PATIENT
  Age: 77 Year
  Sex: Female
  Weight: 72 kg

DRUGS (2)
  1. VALPROATE SODIUM [Suspect]
     Active Substance: VALPROATE SODIUM
     Indication: Intentional overdose
     Dosage: NP 500MG, VALPROATE DE SODIUM, DURATION : 1 DAY
     Route: 048
     Dates: start: 20220121, end: 20220121
  2. OXAZEPAM [Suspect]
     Active Substance: OXAZEPAM
     Indication: Intentional overdose
     Dosage: NP, STRENGTH: 10 MG, DURATION : 1 DAY
     Route: 048
     Dates: start: 20220121, end: 20220121

REACTIONS (4)
  - Bradypnoea [Recovered/Resolved]
  - Poisoning deliberate [Recovered/Resolved]
  - Hypoxia [Recovered/Resolved]
  - Altered state of consciousness [Recovered/Resolved]

NARRATIVE: CASE EVENT DATE: 20220121
